FAERS Safety Report 10045003 (Version 2)
Quarter: 2014Q2

REPORT INFORMATION
  Report Type: Spontaneous
  Country: JP (occurrence: JP)
  Receive Date: 20140328
  Receipt Date: 20140417
  Transmission Date: 20141212
  Serious: Yes (Death, Hospitalization)
  Sender: FDA-Public Use
  Company Number: JP-TEVA-470695ISR

PATIENT
  Age: 74 Year
  Sex: Male

DRUGS (2)
  1. CISPLATIN [Suspect]
     Indication: GASTRIC CANCER
     Dosage: 60MG/M2 ON DAY 8
     Route: 042
  2. S1 [Suspect]
     Indication: GASTRIC CANCER
     Dosage: ADMINISTERED ON DAYS 1-21, FOLLOWED BY 14D REST, REPEATED EVERY 35D
     Route: 048

REACTIONS (3)
  - Arrhythmia [Fatal]
  - Diarrhoea [Not Recovered/Not Resolved]
  - Decreased appetite [Recovered/Resolved]
